FAERS Safety Report 12929695 (Version 1)
Quarter: 2016Q4

REPORT INFORMATION
  Report Type: Report from Study
  Country: IT (occurrence: IT)
  Receive Date: 20161110
  Receipt Date: 20161110
  Transmission Date: 20170207
  Serious: Yes (Other)
  Sender: FDA-Public Use
  Company Number: IT-GILEAD-2016-0242314

PATIENT
  Age: 51 Year
  Sex: Female

DRUGS (4)
  1. PANTOPRAZOLO [Concomitant]
     Active Substance: PANTOPRAZOLE SODIUM
     Dosage: 30 UNKNOWN, UNK
  2. ACIDO ZOLEDRONICO [Concomitant]
     Active Substance: ZOLEDRONIC ACID
     Dosage: 4 MG/YR
  3. VITAMIN D                          /00107901/ [Concomitant]
     Active Substance: ERGOCALCIFEROL
  4. EMTRICITABINE/RILPIVIRINE/TENOFOVIR DF [Suspect]
     Active Substance: EMTRICITABINE\RILPIVIRINE\TENOFOVIR DISOPROXIL FUMARATE
     Indication: HIV INFECTION
     Dosage: UNK
     Route: 065

REACTIONS (1)
  - Osteoporosis [Not Recovered/Not Resolved]

NARRATIVE: CASE EVENT DATE: 20160316
